FAERS Safety Report 24928528 (Version 1)
Quarter: 2025Q1

REPORT INFORMATION
  Report Type: Spontaneous
  Country: DE (occurrence: DE)
  Receive Date: 20250205
  Receipt Date: 20250205
  Transmission Date: 20250409
  Serious: Yes (Other)
  Sender: PAREXEL
  Company Number: DE-STEMLINE THERAPEUTICS B.V.-2025-STML-DE000367

PATIENT

DRUGS (2)
  1. TAGRAXOFUSP [Suspect]
     Active Substance: TAGRAXOFUSP
     Indication: Blastic plasmacytoid dendritic cell neoplasia
     Route: 065
  2. TAGRAXOFUSP [Suspect]
     Active Substance: TAGRAXOFUSP
     Route: 065

REACTIONS (6)
  - Capillary leak syndrome [Unknown]
  - Cytokine release syndrome [Unknown]
  - CSF protein increased [Unknown]
  - CSF lactate increased [Unknown]
  - Pleocytosis [Unknown]
  - Hypoacusis [Unknown]
